FAERS Safety Report 9328767 (Version 1)
Quarter: 2013Q2

REPORT INFORMATION
  Report Type: Spontaneous
  Country: US (occurrence: US)
  Receive Date: 20130604
  Receipt Date: 20130604
  Transmission Date: 20140414
  Serious: Yes (Other)
  Sender: FDA-Public Use
  Company Number: US-BRISTOL-MYERS SQUIBB COMPANY-18941310

PATIENT
  Age: 53 Year
  Sex: Female
  Weight: 136.05 kg

DRUGS (8)
  1. ORENCIA [Suspect]
     Indication: RHEUMATOID ARTHRITIS
     Dates: start: 201302
  2. FOLIC ACID [Concomitant]
  3. INDOMETHACIN [Concomitant]
  4. LOSARTAN [Concomitant]
  5. METFORMIN [Concomitant]
  6. METHOTREXATE [Concomitant]
  7. MULTIVITAMIN [Concomitant]
  8. NEXIUM [Concomitant]

REACTIONS (1)
  - VIIth nerve paralysis [Unknown]
